FAERS Safety Report 9869446 (Version 7)
Quarter: 2014Q2

REPORT INFORMATION
  Report Type: Spontaneous
  Country: US (occurrence: US)
  Receive Date: 20140205
  Receipt Date: 20140623
  Transmission Date: 20141212
  Serious: Yes (Other)
  Sender: FDA-Public Use
  Company Number: US-PFIZER INC-2014029493

PATIENT
  Age: 27 Year
  Sex: Female
  Weight: 49 kg

DRUGS (5)
  1. SUTENT [Suspect]
     Indication: SARCOMA
     Dosage: 37.5 MG, DAILY (TWO WEEKS ON AND ONE WEEK OFF)
     Dates: start: 20140123
  2. SUTENT [Suspect]
     Dosage: 37.5 MG, DAILY (THREE WEEKS ON AND ONE WEEK OFF)
  3. SUTENT [Suspect]
     Dosage: 37.5 MG, DAILY
     Dates: end: 20140502
  4. LEVOTHYROXINE [Concomitant]
     Indication: THYROID DISORDER
     Dosage: UNK
  5. METOPROLOL [Concomitant]
     Indication: CARDIAC DISORDER
     Dosage: UNK

REACTIONS (16)
  - Arterial rupture [Recovered/Resolved]
  - Haemorrhage [Recovered/Resolved]
  - Fatigue [Not Recovered/Not Resolved]
  - Dysphonia [Not Recovered/Not Resolved]
  - Nasopharyngitis [Unknown]
  - Nasal congestion [Recovered/Resolved]
  - Oropharyngeal pain [Recovered/Resolved]
  - Gastrooesophageal reflux disease [Not Recovered/Not Resolved]
  - Dyspepsia [Not Recovered/Not Resolved]
  - Speech disorder [Unknown]
  - Intraocular pressure increased [Unknown]
  - Cataract [Unknown]
  - Wound dehiscence [Unknown]
  - Disease progression [Unknown]
  - Sarcoma [Unknown]
  - Off label use [Unknown]
